FAERS Safety Report 8917728 (Version 1)
Quarter: 2012Q4

REPORT INFORMATION
  Report Type: 
  Country: US (occurrence: US)
  Receive Date: 20121119
  Receipt Date: 20121119
  Transmission Date: 20130627
  Serious: Yes (Other)
  Sender: FDA-Public Use
  Company Number: CHPA2012US023195

PATIENT
  Age: 74 Year
  Sex: Male

DRUGS (2)
  1. EXCEDRIN EXTRA STRENGTH [Suspect]
     Indication: BACK PAIN
     Dosage: 2 DF per day
     Route: 048
  2. INFLUENZA VACCINE [Concomitant]
     Dosage: UNK
     Dates: start: 2012

REACTIONS (2)
  - Hypertension [Not Recovered/Not Resolved]
  - Disease recurrence [Unknown]
